FAERS Safety Report 14598442 (Version 1)
Quarter: 2018Q1

REPORT INFORMATION
  Report Type: Spontaneous
  Country: US (occurrence: US)
  Receive Date: 20180302
  Receipt Date: 20180302
  Transmission Date: 20180509
  Serious: Yes (Hospitalization)
  Sender: FDA-Public Use
  Company Number: None

PATIENT
  Age: 36 Year
  Sex: Male
  Weight: 80.4 kg

DRUGS (2)
  1. POSCONAZOLE [Concomitant]
     Dates: start: 20180209, end: 20180228
  2. MIDOSTAURIN [Suspect]
     Active Substance: MIDOSTAURIN
     Indication: LEUKAEMIA
     Route: 048
     Dates: start: 20180219, end: 20180302

REACTIONS (3)
  - Condition aggravated [None]
  - Respiratory disorder [None]
  - Pulmonary oedema [None]

NARRATIVE: CASE EVENT DATE: 20180222
